FAERS Safety Report 4555974-5 (Version None)
Quarter: 2005Q1

REPORT INFORMATION
  Report Type: 
  Country: None (occurrence: None)
  Receive Date: 20050111
  Receipt Date: 20041122
  Transmission Date: 20050727
  Serious: Yes (Other)
  Sender: FDA-Public Use
  Company Number: PHEH2004US12585

PATIENT
  Age: 10 Month
  Sex: Male

DRUGS (2)
  1. ELIDEL [Suspect]
     Indication: ECZEMA
     Dosage: 1%, BID, TOPICAL
     Route: 061
     Dates: start: 20040929, end: 20041120
  2. ZYRTEC [Concomitant]

REACTIONS (4)
  - BRONCHITIS [None]
  - EAR INFECTION [None]
  - NASOPHARYNGITIS [None]
  - RHINORRHOEA [None]
